FAERS Safety Report 22145080 (Version 1)
Quarter: 2023Q1

REPORT INFORMATION
  Report Type: Spontaneous
  Country: FR (occurrence: FR)
  Receive Date: 20230328
  Receipt Date: 20230328
  Transmission Date: 20230417
  Serious: Yes (Hospitalization)
  Sender: FDA-Public Use
  Company Number: None

PATIENT
  Age: 38 Year
  Sex: Female

DRUGS (3)
  1. AMOXICILLIN [Suspect]
     Active Substance: AMOXICILLIN
     Indication: Respiratory tract infection
     Dosage: AMOXICILLINE
     Dates: start: 20191029, end: 20191029
  2. VENLAFAXINE [Concomitant]
     Active Substance: VENLAFAXINE HYDROCHLORIDE
     Indication: Product used for unknown indication
  3. SOLUPRED [Concomitant]
     Indication: Product used for unknown indication

REACTIONS (1)
  - Anaphylactic shock [Recovered/Resolved]

NARRATIVE: CASE EVENT DATE: 20191029
